FAERS Safety Report 16674582 (Version 2)
Quarter: 2019Q4

REPORT INFORMATION
  Report Type: Report from Study
  Country: CA (occurrence: CA)
  Receive Date: 20190806
  Receipt Date: 20191029
  Transmission Date: 20200122
  Serious: Yes (Other)
  Sender: FDA-Public Use
  Company Number: CA-JNJFOC-20180430760

PATIENT
  Age: 59 Year
  Sex: Male

DRUGS (6)
  1. IMBRUVICA [Suspect]
     Active Substance: IBRUTINIB
     Route: 048
  2. IMBRUVICA [Suspect]
     Active Substance: IBRUTINIB
     Indication: CHRONIC GRAFT VERSUS HOST DISEASE
     Dosage: STRENGTH = 140 MG
     Route: 048
     Dates: start: 20180417
  3. PREDNISONE. [Suspect]
     Active Substance: PREDNISONE
  4. PREDNISONE. [Suspect]
     Active Substance: PREDNISONE
     Indication: PRODUCT USED FOR UNKNOWN INDICATION
     Dosage: PREDNISONE DOSE WAS INCREASED TO 50MG FOR 1 WEEK, BUT IS BEING TAPERED DOWN NOW
  5. PREDNISONE. [Suspect]
     Active Substance: PREDNISONE
  6. IMBRUVICA [Suspect]
     Active Substance: IBRUTINIB
     Route: 048

REACTIONS (16)
  - Nasal ulcer [Unknown]
  - Fatigue [Unknown]
  - Haemoglobin decreased [Unknown]
  - Asthenia [Unknown]
  - Skin disorder [Unknown]
  - Blister [Unknown]
  - Tendon pain [Unknown]
  - Muscle injury [Unknown]
  - Amnesia [Unknown]
  - Skin irritation [Unknown]
  - Basal cell carcinoma [Unknown]
  - Blood blister [Unknown]
  - Epistaxis [Not Recovered/Not Resolved]
  - Back pain [Unknown]
  - Eyelid margin crusting [Not Recovered/Not Resolved]
  - Tendon rupture [Unknown]

NARRATIVE: CASE EVENT DATE: 201804
